FAERS Safety Report 4538335-4 (Version None)
Quarter: 2004Q4

REPORT INFORMATION
  Report Type: 
  Country: None (occurrence: None)
  Receive Date: 20041223
  Receipt Date: 20041223
  Transmission Date: 20050328
  Serious: Yes (Other)
  Sender: FDA-Public Use
  Company Number: None

PATIENT
  Age: 51 Year
  Sex: Male

DRUGS (7)
  1. PROPAFENONE HCL [Suspect]
     Indication: ARRHYTHMIA
     Dosage: Q8H
     Dates: start: 20031201
  2. NOVOLOG [Concomitant]
  3. LANUS [Concomitant]
  4. PRAVACHOL [Concomitant]
  5. ALLEGRA [Concomitant]
  6. WARFARIN SODIUM [Concomitant]
  7. LISINOPRIL [Concomitant]

REACTIONS (1)
  - ARRHYTHMIA [None]
